FAERS Safety Report 12106509 (Version 1)
Quarter: 2016Q1

REPORT INFORMATION
  Report Type: Report from Study
  Country: US (occurrence: US)
  Receive Date: 20160223
  Receipt Date: 20160223
  Transmission Date: 20160526
  Serious: Yes (Other)
  Sender: FDA-Public Use
  Company Number: US-MYLANLABS-2016M1006954

PATIENT

DRUGS (3)
  1. OPROZOMIB [Suspect]
     Active Substance: OPROZOMIB
     Indication: PLASMA CELL MYELOMA
     Dosage: ON DAYS 1-5 AND 15-19 (THAT IS, 5/14 SCHEDULE)
     Route: 048
  2. POMALIDOMIDE [Suspect]
     Active Substance: POMALIDOMIDE
     Indication: PLASMA CELL MYELOMA
     Dosage: ON DAYS 1-21, (28 DAYS CYCLE)
     Route: 048
  3. DEXAMETHASONE. [Suspect]
     Active Substance: DEXAMETHASONE
     Indication: PLASMA CELL MYELOMA
     Dosage: ON DAYS 1, 2, 8, 9, 15, 16, 22, 23
     Route: 048

REACTIONS (2)
  - Abdominal distension [Unknown]
  - Cognitive disorder [Unknown]
